FAERS Safety Report 5955169-4 (Version None)
Quarter: 2008Q4

REPORT INFORMATION
  Report Type: 
  Country: None (occurrence: None)
  Receive Date: 20081113
  Receipt Date: 20081113
  Transmission Date: 20090506
  Serious: Yes (Other)
  Sender: FDA-Public Use
  Company Number: None

PATIENT
  Age: 27 Year
  Sex: Female
  Weight: 59 kg

DRUGS (7)
  1. KALETRA [Suspect]
     Indication: HIV INFECTION
     Dosage: 500 MG BD PO
     Route: 048
     Dates: start: 20061214
  2. TRUVADA [Suspect]
     Indication: HIV INFECTION
     Dosage: 200/300 MG OD PO
     Route: 048
     Dates: start: 20061214, end: 20080507
  3. EMTRIVA [Suspect]
     Indication: HIV INFECTION
     Dosage: 200 MG OD PO
     Route: 048
     Dates: start: 20080507
  4. RETROVIR [Suspect]
     Indication: HIV INFECTION
     Dosage: 300 MG BD PO
     Route: 048
     Dates: start: 20080507
  5. MULTI-VITAMIN [Concomitant]
  6. BACTRIM [Concomitant]
  7. FANSIDAR [Concomitant]

REACTIONS (12)
  - AMNIOTIC FLUID VOLUME DECREASED [None]
  - DIARRHOEA [None]
  - DRUG EXPOSURE DURING PREGNANCY [None]
  - FOETAL CARDIAC DISORDER [None]
  - FOETAL DISORDER [None]
  - FOLLICULITIS [None]
  - HAEMOGLOBIN DECREASED [None]
  - INDUCED LABOUR [None]
  - INTRA-UTERINE DEATH [None]
  - PLACENTAL DISORDER [None]
  - PREGNANCY [None]
  - WEIGHT DECREASED [None]
